FAERS Safety Report 17305968 (Version 1)
Quarter: 2020Q1

REPORT INFORMATION
  Report Type: Spontaneous
  Country: GR (occurrence: GR)
  Receive Date: 20200123
  Receipt Date: 20200123
  Transmission Date: 20200409
  Serious: Yes (Death)
  Sender: FDA-Public Use
  Company Number: GR-CIRCASSIA PHARMACEUTICALS INC-2020GR000363

PATIENT
  Age: 69 Year
  Sex: Male

DRUGS (1)
  1. ACLIDINIUM + FORMOTEROL [Suspect]
     Active Substance: ACLIDINIUM BROMIDE\FORMOTEROL FUMARATE
     Indication: CHRONIC OBSTRUCTIVE PULMONARY DISEASE
     Dosage: 1 X 2
     Route: 055
     Dates: start: 20190830, end: 20191104

REACTIONS (1)
  - Lung neoplasm malignant [Fatal]

NARRATIVE: CASE EVENT DATE: 20191104
